FAERS Safety Report 20612927 (Version 1)
Quarter: 2022Q1

REPORT INFORMATION
  Report Type: Spontaneous
  Country: AE (occurrence: AE)
  Receive Date: 20220318
  Receipt Date: 20220318
  Transmission Date: 20220424
  Serious: Yes (Hospitalization, Other)
  Sender: FDA-Public Use
  Company Number: AE-DASHPHARMA-2022-AE-000005

PATIENT
  Age: 27 Year
  Sex: Male

DRUGS (4)
  1. TESTOSTERONE [Suspect]
     Active Substance: TESTOSTERONE
     Indication: Performance enhancing product use
  2. DROMOSTANOLONE [Suspect]
     Active Substance: DROMOSTANOLONE
     Indication: Performance enhancing product use
  3. STANOZOLOL [Suspect]
     Active Substance: STANOZOLOL
     Indication: Performance enhancing product use
  4. LEVOCETIRIZINE [Concomitant]
     Active Substance: LEVOCETIRIZINE

REACTIONS (5)
  - Nephropathy [Recovered/Resolved]
  - Hyperbilirubinaemia [Recovered/Resolved]
  - Cholestatic liver injury [Recovered/Resolved]
  - Acute kidney injury [Recovered/Resolved]
  - Drug abuse [Recovered/Resolved]
